FAERS Safety Report 12825426 (Version 1)
Quarter: 2016Q4

REPORT INFORMATION
  Report Type: Spontaneous
  Country: EG (occurrence: EG)
  Receive Date: 20161007
  Receipt Date: 20161007
  Transmission Date: 20170207
  Serious: Yes (Death, Hospitalization)
  Sender: FDA-Public Use
  Company Number: EG-SA-2016SA184637

PATIENT
  Age: 18 Year
  Sex: Female
  Weight: 36 kg

DRUGS (1)
  1. CEREZYME [Suspect]
     Active Substance: IMIGLUCERASE
     Indication: GAUCHER^S DISEASE
     Route: 042

REACTIONS (7)
  - Hepatopulmonary syndrome [Fatal]
  - Dyspnoea [Fatal]
  - Tachypnoea [Fatal]
  - Pyrexia [Fatal]
  - Circulatory collapse [Fatal]
  - Respiratory distress [Fatal]
  - Oxygen saturation decreased [Fatal]

NARRATIVE: CASE EVENT DATE: 20160927
